FAERS Safety Report 14506400 (Version 1)
Quarter: 2018Q1

REPORT INFORMATION
  Report Type: Spontaneous
  Country: US (occurrence: US)
  Receive Date: 20180208
  Receipt Date: 20180208
  Transmission Date: 20180509
  Serious: Yes (Hospitalization, Other)
  Sender: FDA-Public Use
  Company Number: US-IMPAX LABORATORIES, INC-2018-IPXL-00262

PATIENT
  Age: 30 Year
  Sex: Male

DRUGS (10)
  1. BACLOFEN. [Suspect]
     Active Substance: BACLOFEN
     Dosage: 900 ?G, DAILY
     Route: 037
     Dates: start: 2010
  2. OXYCODONE [Concomitant]
     Active Substance: OXYCODONE
     Indication: PRODUCT USED FOR UNKNOWN INDICATION
     Dosage: UNK, PRN
     Route: 065
  3. BACLOFEN. [Suspect]
     Active Substance: BACLOFEN
     Indication: MUSCLE SPASTICITY
     Dosage: UNK
     Route: 037
     Dates: start: 2010
  4. BACLOFEN. [Suspect]
     Active Substance: BACLOFEN
     Dosage: 50 ?G, DAILY
     Route: 037
     Dates: start: 2010
  5. MARIJUANA [Concomitant]
     Active Substance: CANNABIS SATIVA SUBSP. INDICA TOP
     Indication: PRODUCT USED FOR UNKNOWN INDICATION
     Dosage: UNK, PRN
     Route: 065
  6. BACLOFEN. [Suspect]
     Active Substance: BACLOFEN
     Dosage: 620 ?G, DAILY
     Route: 037
     Dates: start: 2010
  7. BACLOFEN. [Suspect]
     Active Substance: BACLOFEN
     Dosage: UNK
     Route: 048
  8. BACLOFEN. [Suspect]
     Active Substance: BACLOFEN
     Dosage: 675 ?G, DAILY
     Route: 037
     Dates: start: 2010
  9. GABAPENTIN. [Concomitant]
     Active Substance: GABAPENTIN
     Indication: PRODUCT USED FOR UNKNOWN INDICATION
     Dosage: 300 MG, 3 /DAY
     Route: 065
  10. BACLOFEN. [Suspect]
     Active Substance: BACLOFEN
     Dosage: 30 MG, 4 /DAY
     Route: 048

REACTIONS (13)
  - Pruritus generalised [Recovering/Resolving]
  - Muscle spasticity [Recovering/Resolving]
  - Urinary tract infection [Unknown]
  - Agitation [Recovering/Resolving]
  - Hypercapnia [Recovering/Resolving]
  - Hypotension [Recovering/Resolving]
  - Drug withdrawal syndrome [Recovering/Resolving]
  - Septic shock [Unknown]
  - Device failure [Unknown]
  - Flushing [Recovering/Resolving]
  - Bradycardia [Recovering/Resolving]
  - Somnolence [Recovering/Resolving]
  - Skin abrasion [Recovering/Resolving]
